FAERS Safety Report 9407299 (Version 1)
Quarter: 2013Q3

REPORT INFORMATION
  Report Type: Spontaneous
  Country: IT (occurrence: IT)
  Receive Date: 20130718
  Receipt Date: 20130718
  Transmission Date: 20140515
  Serious: Yes (Other)
  Sender: FDA-Public Use
  Company Number: IT-PFIZER INC-2013207224

PATIENT
  Age: 81 Year
  Sex: Male

DRUGS (10)
  1. XANAX [Suspect]
     Indication: ANXIETY
     Dosage: 2 DF DAILY
     Route: 048
     Dates: start: 20130613, end: 20130613
  2. AMIODARONE HCL [Suspect]
     Indication: CARDIAC DISORDER
     Dosage: 200 MG DAILY
     Route: 048
     Dates: start: 20130101, end: 20130613
  3. LASIX [Suspect]
     Indication: CARDIAC DISORDER
     Dosage: 25 MG, 2X/DAY
     Route: 048
     Dates: start: 20130401, end: 20130613
  4. COUMADIN [Concomitant]
     Dosage: 5 MG, UNK
     Route: 048
  5. ISMO [Concomitant]
     Dosage: UNK
     Route: 048
  6. DILATREND [Concomitant]
     Dosage: UNK
     Route: 048
  7. SERETIDE [Concomitant]
     Dosage: UNK
  8. TRITTICO [Concomitant]
     Dosage: UNK
     Route: 048
  9. ZYLORIC [Concomitant]
     Dosage: UNK
     Route: 048
  10. ENAPREN [Concomitant]
     Dosage: UNK
     Route: 048

REACTIONS (1)
  - Presyncope [Recovering/Resolving]
